FAERS Safety Report 5392338-9 (Version None)
Quarter: 2007Q3

REPORT INFORMATION
  Report Type: 
  Country: None (occurrence: None)
  Receive Date: 20070720
  Receipt Date: 20070713
  Transmission Date: 20080115
  Serious: Yes (Other)
  Sender: FDA-Public Use
  Company Number: JP-MERCK-0707USA01869

PATIENT
  Age: 66 Year
  Sex: Female

DRUGS (2)
  1. PEPCID [Suspect]
     Route: 041
     Dates: end: 20070618
  2. SULPERAZON [Suspect]
     Route: 065
     Dates: end: 20070618

REACTIONS (1)
  - NEUTROPHIL COUNT DECREASED [None]
